FAERS Safety Report 19449347 (Version 1)
Quarter: 2021Q2

REPORT INFORMATION
  Report Type: Spontaneous
  Country: FR (occurrence: FR)
  Receive Date: 20210622
  Receipt Date: 20210622
  Transmission Date: 20210717
  Serious: Yes (Hospitalization)
  Sender: FDA-Public Use
  Company Number: FR-ASTRAZENECA-2021A529301

PATIENT
  Age: 66 Year
  Sex: Male

DRUGS (3)
  1. IDARUBICIN [Concomitant]
     Active Substance: IDARUBICIN
     Indication: CHEMOTHERAPY
  2. CORTICOSTEROID THERAPY [Concomitant]
     Indication: PHOTOSENSITIVITY REACTION
     Dosage: 0.5 MG/KG
     Route: 065
  3. DURVALUMAB. [Suspect]
     Active Substance: DURVALUMAB
     Route: 042

REACTIONS (1)
  - Paraneoplastic dermatomyositis [Unknown]
